FAERS Safety Report 16192951 (Version 2)
Quarter: 2019Q4

REPORT INFORMATION
  Report Type: Spontaneous
  Country: US (occurrence: US)
  Receive Date: 20190413
  Receipt Date: 20191114
  Transmission Date: 20200122
  Serious: Yes (Hospitalization, Other)
  Sender: FDA-Public Use
  Company Number: US-JNJFOC-20190345096

PATIENT
  Age: 72 Year
  Sex: Male

DRUGS (2)
  1. XARELTO [Suspect]
     Active Substance: RIVAROXABAN
     Indication: DEEP VEIN THROMBOSIS
     Dosage: 15 MG TWICE DAILY FOR 21 DAYS THEN 20 MG ONCE DAILY
     Route: 048
     Dates: start: 20170410, end: 20170518
  2. XARELTO [Suspect]
     Active Substance: RIVAROXABAN
     Route: 048
     Dates: start: 20170519, end: 20170523

REACTIONS (2)
  - Gastrointestinal haemorrhage [Unknown]
  - Blood loss anaemia [Unknown]

NARRATIVE: CASE EVENT DATE: 20170501
